FAERS Safety Report 15136837 (Version 3)
Quarter: 2018Q4

REPORT INFORMATION
  Report Type: Spontaneous
  Country: NL (occurrence: NL)
  Receive Date: 20180712
  Receipt Date: 20181205
  Transmission Date: 20190204
  Serious: Yes (Hospitalization, Other)
  Sender: FDA-Public Use
  Company Number: PHHY2018NL040436

PATIENT
  Sex: Female

DRUGS (2)
  1. BENZYLPENICILLIN SODIUM [Suspect]
     Active Substance: PENICILLIN G SODIUM
     Indication: PRODUCT USED FOR UNKNOWN INDICATION
     Dosage: UNK
     Route: 065
  2. BENZATHINE BENZYLPENICILLIN SANDOZ [Suspect]
     Active Substance: PENICILLIN G BENZATHINE
     Indication: PRODUCT USED FOR UNKNOWN INDICATION
     Dosage: 18 MILLION IU, QD
     Route: 042
     Dates: start: 20180227, end: 20180227

REACTIONS (4)
  - Renal impairment [Recovered/Resolved]
  - Seizure [Recovered/Resolved]
  - Embolism [Recovered/Resolved]
  - Incorrect route of product administration [Unknown]

NARRATIVE: CASE EVENT DATE: 20180227
